FAERS Safety Report 8341618-3 (Version None)
Quarter: 2012Q2

REPORT INFORMATION
  Report Type: 
  Country: None (occurrence: None)
  Receive Date: 20120507
  Receipt Date: 20120426
  Transmission Date: 20120825
  Serious: Yes (Hospitalization)
  Sender: FDA-Public Use
  Company Number: JP-JNJFOC-20120504222

PATIENT
  Sex: Male

DRUGS (2)
  1. ZYRTEC [Suspect]
     Indication: RHINITIS ALLERGIC
     Route: 048
     Dates: start: 20120101, end: 20120301
  2. ZYRTEC [Suspect]
     Route: 048

REACTIONS (4)
  - PYREXIA [None]
  - ABDOMINAL PAIN [None]
  - JOINT INJURY [None]
  - RASH [None]
